FAERS Safety Report 6831529-4 (Version None)
Quarter: 2010Q3

REPORT INFORMATION
  Report Type: 
  Country: None (occurrence: None)
  Receive Date: 20100712
  Receipt Date: 20100629
  Transmission Date: 20110219
  Serious: Yes (Other)
  Sender: FDA-Public Use
  Company Number: US-JNJFOC-20100702237

PATIENT
  Sex: Male

DRUGS (2)
  1. CHILDREN'S TYLENOL SUSPENSION [Suspect]
     Indication: COUGH
     Route: 048
  2. CHILDREN'S TYLENOL SUSPENSION [Suspect]
     Indication: RHINORRHOEA
     Route: 048

REACTIONS (1)
  - DYSPNOEA [None]
